FAERS Safety Report 5443919-5 (Version None)
Quarter: 2007Q3

REPORT INFORMATION
  Report Type: 
  Country: None (occurrence: None)
  Receive Date: 20070905
  Receipt Date: 20070830
  Transmission Date: 20080115
  Serious: Yes (Life-Threatening, Hospitalization)
  Sender: FDA-Public Use
  Company Number: FR-BOEHRINGER INGELHEIM PHARMACEUTICALS, INC.-2007-FF-00872FF

PATIENT
  Age: 76 Year
  Sex: Female

DRUGS (1)
  1. MOBIC [Suspect]
     Route: 048

REACTIONS (2)
  - BONE MARROW FAILURE [None]
  - STEVENS-JOHNSON SYNDROME [None]
